FAERS Safety Report 15662804 (Version 2)
Quarter: 2018Q4

REPORT INFORMATION
  Report Type: Spontaneous
  Country: US (occurrence: US)
  Receive Date: 20181127
  Receipt Date: 20181227
  Transmission Date: 20190205
  Serious: Yes (Other)
  Sender: FDA-Public Use
  Company Number: US-SA-2018SA174965

PATIENT
  Age: 54 Year
  Sex: Female

DRUGS (10)
  1. DECADRON [DEXAMETHASONE] [Concomitant]
     Dosage: 20 MG
     Route: 048
  2. ACTINOMYCIN C [Concomitant]
     Active Substance: CACTINOMYCIN
     Route: 065
  3. ATIVAN [Concomitant]
     Active Substance: LORAZEPAM
     Dosage: 1 MG
     Route: 065
  4. PLATINOL [Concomitant]
     Active Substance: CISPLATIN
     Route: 065
  5. CYTOXAN [Concomitant]
     Active Substance: CYCLOPHOSPHAMIDE
     Dosage: 100 MG
     Route: 042
  6. TAXOTERE [Suspect]
     Active Substance: DOCETAXEL
     Dosage: 100 MG, Q3W
     Route: 042
     Dates: start: 19991005, end: 19991005
  7. FLUOROURACIL 5 FU [Concomitant]
     Active Substance: FLUOROURACIL
     Route: 065
  8. TAXOTERE [Suspect]
     Active Substance: DOCETAXEL
     Indication: BREAST CANCER FEMALE
     Dosage: 100 MG, Q3W
     Route: 042
     Dates: start: 19990802, end: 19990802
  9. ADRIAMYCIN [Concomitant]
     Active Substance: DOXORUBICIN HYDROCHLORIDE
     Dosage: 100 MG
     Route: 042
  10. KYTRIL [Concomitant]
     Active Substance: GRANISETRON HYDROCHLORIDE
     Dosage: 1 MG
     Route: 048

REACTIONS (2)
  - Alopecia [Not Recovered/Not Resolved]
  - Psychological trauma [Unknown]

NARRATIVE: CASE EVENT DATE: 20000401
